FAERS Safety Report 9571217 (Version 1)
Quarter: 2013Q3

REPORT INFORMATION
  Report Type: Spontaneous
  Country: US (occurrence: None)
  Receive Date: 20130927
  Receipt Date: 20130927
  Transmission Date: 20140515
  Serious: Yes (Hospitalization, Other)
  Sender: FDA-Public Use
  Company Number: None

PATIENT
  Age: 46 Year
  Sex: Male
  Weight: 81.65 kg

DRUGS (1)
  1. LEVAQUIN [Suspect]
     Indication: PROSTATITIS
     Dosage: 30 ONCE DAILY TAKEN BY MOUTH

REACTIONS (4)
  - Musculoskeletal pain [None]
  - Epistaxis [None]
  - Rotator cuff syndrome [None]
  - Thrombocytopenia [None]
